FAERS Safety Report 7270899-2 (Version None)
Quarter: 2011Q1

REPORT INFORMATION
  Report Type: 
  Country: None (occurrence: None)
  Receive Date: 20110125
  Receipt Date: 20110125
  Transmission Date: 20110831
  Serious: Yes (Hospitalization)
  Sender: FDA-Public Use
  Company Number: None

PATIENT
  Age: 35 Year
  Sex: Female
  Weight: 72.5755 kg

DRUGS (1)
  1. YASMIN BIRTH CONTROL BEYER [Suspect]
     Indication: CONTRACEPTION
     Dosage: 1 PILL DAILY
     Dates: start: 20010101, end: 20101007

REACTIONS (2)
  - CHOLELITHIASIS [None]
  - BILE DUCT STONE [None]
